FAERS Safety Report 19405239 (Version 1)
Quarter: 2021Q2

REPORT INFORMATION
  Report Type: Spontaneous
  Country: US (occurrence: US)
  Receive Date: 20210611
  Receipt Date: 20210611
  Transmission Date: 20210717
  Serious: Yes (Other)
  Sender: FDA-Public Use
  Company Number: US-ROCHE-2398418

PATIENT
  Sex: Female

DRUGS (1)
  1. VALIUM [Suspect]
     Active Substance: DIAZEPAM
     Indication: POOR QUALITY SLEEP
     Route: 065

REACTIONS (5)
  - Road traffic accident [Unknown]
  - Anxiety [Unknown]
  - Pain [Unknown]
  - Fatigue [Unknown]
  - Basedow^s disease [Unknown]
